FAERS Safety Report 18028603 (Version 1)
Quarter: 2020Q3

REPORT INFORMATION
  Report Type: Spontaneous
  Country: RU (occurrence: RU)
  Receive Date: 20200716
  Receipt Date: 20200716
  Transmission Date: 20201103
  Serious: Yes (Other)
  Sender: FDA-Public Use
  Company Number: RU-TEVA-2020-RU-1800025

PATIENT

DRUGS (9)
  1. BCG?VACCINE [Suspect]
     Active Substance: BCG VACCINE
     Indication: IMMUNISATION
     Route: 065
  2. TREOSULFAN [Suspect]
     Active Substance: TREOSULFAN
     Indication: IMMUNOSUPPRESSANT DRUG THERAPY
     Dosage: 42 G/M2
     Route: 065
  3. THIOTEPA. [Suspect]
     Active Substance: THIOTEPA
     Indication: IMMUNOSUPPRESSANT DRUG THERAPY
     Route: 065
  4. ABATACEPT [Concomitant]
     Active Substance: ABATACEPT
     Indication: ANTIINFLAMMATORY THERAPY
     Route: 065
  5. FLUDARABINE [Suspect]
     Active Substance: FLUDARABINE PHOSPHATE
     Indication: IMMUNOSUPPRESSANT DRUG THERAPY
     Route: 065
  6. DEFIBROTIDE [Concomitant]
     Active Substance: DEFIBROTIDE (BOVINE)
     Indication: ANTIINFLAMMATORY THERAPY
     Route: 065
  7. TOCILIZUMAB. [Concomitant]
     Active Substance: TOCILIZUMAB
     Indication: ANTIINFLAMMATORY THERAPY
     Route: 065
  8. RITUXIMAB. [Suspect]
     Active Substance: RITUXIMAB
     Indication: IMMUNOSUPPRESSANT DRUG THERAPY
     Route: 065
  9. THYMOGLOBULIN [Suspect]
     Active Substance: LAPINE T-LYMPHOCYTE IMMUNE GLOBULIN
     Indication: IMMUNOSUPPRESSANT DRUG THERAPY
     Dosage: ON DAYS ?5 AND ?4
     Route: 065

REACTIONS (2)
  - Disseminated Bacillus Calmette-Guerin infection [Recovered/Resolved]
  - Immune reconstitution inflammatory syndrome [Recovered/Resolved]
